FAERS Safety Report 20458884 (Version 2)
Quarter: 2022Q1

REPORT INFORMATION
  Report Type: Spontaneous
  Country: US (occurrence: US)
  Receive Date: 20220211
  Receipt Date: 20220223
  Transmission Date: 20220424
  Serious: Yes (Other)
  Sender: FDA-Public Use
  Company Number: ENDG22-00295

PATIENT
  Sex: Female

DRUGS (4)
  1. BOSENTAN [Suspect]
     Active Substance: BOSENTAN
     Indication: Pulmonary arterial hypertension
     Dosage: UNK UNKNOWN, UNKNOWN
     Route: 065
  2. BOSENTAN [Suspect]
     Active Substance: BOSENTAN
     Indication: Interstitial lung disease
     Dosage: 125 MG, BID
     Route: 048
     Dates: start: 20190613
  3. BOSENTAN [Suspect]
     Active Substance: BOSENTAN
     Indication: Pulmonary hypertension
  4. BOSENTAN [Suspect]
     Active Substance: BOSENTAN
     Indication: Connective tissue disorder

REACTIONS (1)
  - COVID-19 [Unknown]
